FAERS Safety Report 14752209 (Version 2)
Quarter: 2018Q2

REPORT INFORMATION
  Report Type: Spontaneous
  Country: GB (occurrence: GB)
  Receive Date: 20180412
  Receipt Date: 20180601
  Transmission Date: 20180711
  Serious: Yes (Other)
  Sender: FDA-Public Use
  Company Number: GB-MYLANLABS-2018M1021144

PATIENT
  Age: 45 Year
  Sex: Female

DRUGS (1)
  1. CLOZARIL [Suspect]
     Active Substance: CLOZAPINE
     Indication: SCHIZOPHRENIA
     Dosage: 600 MG, PM
     Route: 048
     Dates: start: 20040401

REACTIONS (10)
  - Dizziness [Unknown]
  - Antipsychotic drug level increased [Unknown]
  - Anaemia [Not Recovered/Not Resolved]
  - Sedation [Unknown]
  - Neutrophilia [Not Recovered/Not Resolved]
  - Platelet count increased [Unknown]
  - Monocyte count decreased [Unknown]
  - Eosinophil count decreased [Unknown]
  - Weight decreased [Not Recovered/Not Resolved]
  - Leukocytosis [Not Recovered/Not Resolved]

NARRATIVE: CASE EVENT DATE: 20180411
